FAERS Safety Report 5361647-1 (Version None)
Quarter: 2007Q2

REPORT INFORMATION
  Report Type: 
  Country: None (occurrence: None)
  Receive Date: 20070619
  Receipt Date: 20070611
  Transmission Date: 20071010
  Serious: Yes (Hospitalization, Other)
  Sender: FDA-Public Use
  Company Number: US-JNJFOC-20070602497

PATIENT
  Age: 26 Year
  Sex: Female
  Weight: 77.11 kg

DRUGS (1)
  1. REMICADE [Suspect]
     Indication: CROHN'S DISEASE
     Route: 042
     Dates: start: 20070503

REACTIONS (4)
  - ABDOMINAL PAIN [None]
  - CARDIOMYOPATHY [None]
  - VOMITING [None]
  - WEIGHT INCREASED [None]
